FAERS Safety Report 18866753 (Version 8)
Quarter: 2021Q4

REPORT INFORMATION
  Report Type: Report from Study
  Country: US (occurrence: US)
  Receive Date: 20210209
  Receipt Date: 20211022
  Transmission Date: 20220303
  Serious: No
  Sender: FDA-Public Use
  Company Number: NVSC2021US024606

PATIENT
  Age: 58 Year
  Sex: Female

DRUGS (5)
  1. MAYZENT [Suspect]
     Active Substance: SIPONIMOD
     Indication: Relapsing-remitting multiple sclerosis
     Dosage: 2 MG, QD
     Route: 048
     Dates: start: 20210122, end: 20210129
  2. MAYZENT [Suspect]
     Active Substance: SIPONIMOD
     Dosage: UNK UNK, QD
     Route: 048
  3. MAYZENT [Suspect]
     Active Substance: SIPONIMOD
     Route: 048
  4. KESIMPTA [Suspect]
     Active Substance: OFATUMUMAB
     Indication: Relapsing-remitting multiple sclerosis
     Dosage: 20 MG, QMO
     Route: 058
     Dates: start: 20210329
  5. KESIMPTA [Suspect]
     Active Substance: OFATUMUMAB
     Dosage: 20 MG, QMO
     Route: 058

REACTIONS (7)
  - Balance disorder [Unknown]
  - Fall [Recovered/Resolved]
  - Anal incontinence [Not Recovered/Not Resolved]
  - Contusion [Not Recovered/Not Resolved]
  - Tremor [Unknown]
  - Hypertension [Recovered/Resolved]
  - Pain in extremity [Recovered/Resolved]

NARRATIVE: CASE EVENT DATE: 20210129
